FAERS Safety Report 11633187 (Version 1)
Quarter: 2015Q4

REPORT INFORMATION
  Report Type: Spontaneous
  Country: US (occurrence: None)
  Receive Date: 20151014
  Receipt Date: 20151014
  Transmission Date: 20160304
  Serious: Yes (Life-Threatening, Other)
  Sender: FDA-Public Use
  Company Number: None

PATIENT
  Age: 61 Year
  Sex: Female
  Weight: 72.58 kg

DRUGS (1)
  1. COZAAR [Suspect]
     Active Substance: LOSARTAN POTASSIUM
     Indication: HYPERTENSION
     Dosage: 1 PILL A DAY 1 PILL A DAY MOUTH
     Route: 048
     Dates: start: 20150730, end: 20150805

REACTIONS (8)
  - Drug ineffective [None]
  - Miosis [None]
  - Cardiac disorder [None]
  - Pain in extremity [None]
  - Product formulation issue [None]
  - Extrasystoles [None]
  - Headache [None]
  - Product substitution issue [None]

NARRATIVE: CASE EVENT DATE: 20150729
